FAERS Safety Report 4686576-8 (Version None)
Quarter: 2005Q2

REPORT INFORMATION
  Report Type: 
  Country: None (occurrence: None)
  Receive Date: 20050607
  Receipt Date: 20050525
  Transmission Date: 20051028
  Serious: Yes (Other)
  Sender: FDA-Public Use
  Company Number: US_0505118082

PATIENT
  Sex: Female

DRUGS (2)
  1. HUMULIN R [Suspect]
     Dates: start: 20010101
  2. HUMILIN-HUMAN NPH INSULIN (RDNA) (HUMAN INSULIN (RD [Suspect]
     Dates: start: 20010101

REACTIONS (2)
  - ROAD TRAFFIC ACCIDENT [None]
  - SURGERY [None]
